FAERS Safety Report 12637438 (Version 1)
Quarter: 2016Q3

REPORT INFORMATION
  Report Type: Spontaneous
  Country: US (occurrence: US)
  Receive Date: 20160809
  Receipt Date: 20160809
  Transmission Date: 20161109
  Serious: No
  Sender: FDA-Public Use
  Company Number: US-BEH-2016062135

PATIENT
  Age: 50 Year
  Sex: Female
  Weight: 94 kg

DRUGS (23)
  1. DIPHENHYDRAMINE. [Concomitant]
     Active Substance: DIPHENHYDRAMINE
  2. LYRICA [Concomitant]
     Active Substance: PREGABALIN
  3. FERROUS SULFATE. [Concomitant]
     Active Substance: FERROUS SULFATE
  4. ANTIFUNGAL CREAM [Concomitant]
     Active Substance: MICONAZOLE NITRATE
  5. HUMALOG [Concomitant]
     Active Substance: INSULIN LISPRO
  6. DIAZEPAM. [Concomitant]
     Active Substance: DIAZEPAM
  7. PRIVIGEN [Suspect]
     Active Substance: HUMAN IMMUNOGLOBULIN G
     Indication: CHRONIC INFLAMMATORY DEMYELINATING POLYRADICULONEUROPATHY
     Route: 042
  8. ACETAMINOPHEN. [Concomitant]
     Active Substance: ACETAMINOPHEN
  9. NORMAL SALINE [Concomitant]
     Active Substance: SODIUM CHLORIDE
  10. ONDANSETRON [Concomitant]
     Active Substance: ONDANSETRON
  11. PROTONIX [Concomitant]
     Active Substance: PANTOPRAZOLE SODIUM
  12. JANTOVEN [Concomitant]
     Active Substance: WARFARIN SODIUM
  13. GLYCERIN. [Concomitant]
     Active Substance: GLYCERIN
  14. OXYCONTIN [Concomitant]
     Active Substance: OXYCODONE HYDROCHLORIDE
  15. MIRALAX [Concomitant]
     Active Substance: POLYETHYLENE GLYCOL 3350
  16. NORCO [Concomitant]
     Active Substance: ACETAMINOPHEN\HYDROCODONE BITARTRATE
  17. LANTUS [Concomitant]
     Active Substance: INSULIN GLARGINE
  18. ROBAXIN [Concomitant]
     Active Substance: METHOCARBAMOL
  19. METOCLOPRAMIDE. [Concomitant]
     Active Substance: METOCLOPRAMIDE
  20. NEOSPORIN [Concomitant]
     Active Substance: BACITRACIN ZINC\NEOMYCIN SULFATE\POLYMYXIN B SULFATE
  21. TRAMADOL. [Concomitant]
     Active Substance: TRAMADOL
  22. COLACE [Concomitant]
     Active Substance: DOCUSATE SODIUM
  23. EPIPEN [Concomitant]
     Active Substance: EPINEPHRINE

REACTIONS (1)
  - International normalised ratio decreased [Unknown]

NARRATIVE: CASE EVENT DATE: 20160104
